FAERS Safety Report 5642251-4 (Version None)
Quarter: 2008Q1

REPORT INFORMATION
  Report Type: 
  Country: None (occurrence: None)
  Receive Date: 20080225
  Receipt Date: 20080210
  Transmission Date: 20080703
  Serious: No
  Sender: FDA-Public Use
  Company Number: US022691

PATIENT
  Age: 5 Year
  Sex: Female

DRUGS (1)
  1. FENTANYL CITRATE [Suspect]
     Dosage: ONCE BUCCAL
     Route: 002

REACTIONS (1)
  - ACCIDENTAL DRUG INTAKE BY CHILD [None]
